FAERS Safety Report 22133056 (Version 2)
Quarter: 2023Q2

REPORT INFORMATION
  Report Type: Spontaneous
  Country: TH (occurrence: TH)
  Receive Date: 20230324
  Receipt Date: 20230403
  Transmission Date: 20230721
  Serious: Yes (Hospitalization, Other)
  Sender: FDA-Public Use
  Company Number: TH-Accord-304823

PATIENT
  Age: 68 Year
  Sex: Male

DRUGS (12)
  1. FLUOROURACIL [Suspect]
     Active Substance: FLUOROURACIL
     Indication: Colon cancer
     Dosage: 400 MG/M2 AS BOLUS +AMP; 1200 MG/M2 INFUSION IN 23 HOURS ON DAYS 1 AND 2
  2. OXALIPLATIN [Concomitant]
     Active Substance: OXALIPLATIN
     Indication: Colon cancer
  3. LEUCOVORIN [Concomitant]
     Active Substance: LEUCOVORIN
     Indication: Colon cancer
  4. METOCLOPRAMIDE [Concomitant]
     Active Substance: METOCLOPRAMIDE
     Dosage: STRENGTH: 10 MG
     Route: 042
  5. FLUOROURACIL [Suspect]
     Active Substance: FLUOROURACIL
     Indication: Colon cancer
     Dosage: 560 +1700MG
  6. LEUCOVORIN [Concomitant]
     Active Substance: LEUCOVORIN
     Indication: Metastases to liver
  7. LEUCOVORIN [Concomitant]
     Active Substance: LEUCOVORIN
     Indication: Metastases to peritoneum
  8. OXALIPLATIN [Concomitant]
     Active Substance: OXALIPLATIN
     Indication: Metastases to liver
  9. OXALIPLATIN [Concomitant]
     Active Substance: OXALIPLATIN
     Indication: Metastases to peritoneum
  10. FLUOROURACIL [Suspect]
     Active Substance: FLUOROURACIL
     Indication: Metastases to peritoneum
     Dosage: 400 MG/M2 BOLUS, +AMP; 1200 MG/M2 INFUSION IN 23 HOURS ON DAYS 1 AND 2
  11. FLUOROURACIL [Suspect]
     Active Substance: FLUOROURACIL
     Indication: Metastases to liver
     Dosage: 400 MG/M2 BOLUS, +AMP; 1200 MG/M2 INFUSION IN 23 HOURS ON DAYS 1 AND 2
  12. FLUOROURACIL [Suspect]
     Active Substance: FLUOROURACIL
     Indication: Colon cancer
     Dosage: ADJUSTED TO 600 MG/M2 CONTINUOUS INFUSION ON DAYS 1 AND 2

REACTIONS (3)
  - Leukoencephalopathy [Recovered/Resolved]
  - Vitamin B1 deficiency [Recovered/Resolved]
  - Lactic acidosis [Recovered/Resolved]
